FAERS Safety Report 13695325 (Version 5)
Quarter: 2018Q4

REPORT INFORMATION
  Report Type: Report from Study
  Country: US (occurrence: US)
  Receive Date: 20170627
  Receipt Date: 20181005
  Transmission Date: 20190204
  Serious: Yes (Hospitalization)
  Sender: FDA-Public Use
  Company Number: US-ACTELION-A-NJ2017-155650

PATIENT
  Age: 45 Year
  Sex: Female

DRUGS (4)
  1. WARFARIN [Concomitant]
     Active Substance: WARFARIN
  2. ADCIRCA [Concomitant]
     Active Substance: TADALAFIL
     Dosage: 40 MG, QD
     Dates: start: 20170330
  3. OPSUMIT [Suspect]
     Active Substance: MACITENTAN
     Indication: PULMONARY HYPERTENSION
     Dosage: 10 MG, QD
     Route: 048
     Dates: start: 20161210
  4. PRILOSEC [Concomitant]
     Active Substance: OMEPRAZOLE MAGNESIUM

REACTIONS (8)
  - Product dose omission [Unknown]
  - Pulmonary oedema [Recovered/Resolved]
  - Circulatory collapse [Unknown]
  - Memory impairment [Not Recovered/Not Resolved]
  - Gingival bleeding [Unknown]
  - Epistaxis [Unknown]
  - Condition aggravated [Unknown]
  - Hypotension [Unknown]

NARRATIVE: CASE EVENT DATE: 20170618
